FAERS Safety Report 16402936 (Version 3)
Quarter: 2019Q3

REPORT INFORMATION
  Report Type: Spontaneous
  Country: US (occurrence: US)
  Receive Date: 20190607
  Receipt Date: 20190717
  Transmission Date: 20191004
  Serious: Yes (Other)
  Sender: FDA-Public Use
  Company Number: US-ASTRAZENECA-2018SF26171

PATIENT
  Age: 589 Month
  Sex: Male
  Weight: 105.2 kg

DRUGS (19)
  1. PROTONIX [Suspect]
     Active Substance: PANTOPRAZOLE SODIUM
     Route: 065
     Dates: start: 200401, end: 200607
  2. CRESTOR [Concomitant]
     Active Substance: ROSUVASTATIN CALCIUM
  3. NEXIUM [Suspect]
     Active Substance: ESOMEPRAZOLE MAGNESIUM
     Indication: GASTROOESOPHAGEAL REFLUX DISEASE
     Route: 048
     Dates: start: 200401, end: 200607
  4. CYCLOSPONINE [Concomitant]
  5. MICARDIS [Concomitant]
     Active Substance: TELMISARTAN
  6. PRILOSEC [Suspect]
     Active Substance: OMEPRAZOLE MAGNESIUM
     Route: 048
     Dates: start: 200401, end: 200607
  7. PRILOSEC OTC [Suspect]
     Active Substance: OMEPRAZOLE MAGNESIUM
     Route: 048
     Dates: start: 200401, end: 200607
  8. PREVACID [Suspect]
     Active Substance: LANSOPRAZOLE
     Indication: GASTROOESOPHAGEAL REFLUX DISEASE
     Route: 065
     Dates: start: 20040301, end: 20050111
  9. PREVACID 24 HR [Suspect]
     Active Substance: LANSOPRAZOLE
     Route: 065
     Dates: start: 200401, end: 200607
  10. PREVACID [Suspect]
     Active Substance: LANSOPRAZOLE
     Indication: GASTROOESOPHAGEAL REFLUX DISEASE
     Route: 065
     Dates: start: 200401, end: 200607
  11. ATELENOL [Concomitant]
  12. ATORVASTATIN [Concomitant]
     Active Substance: ATORVASTATIN
  13. CELEBREX [Concomitant]
     Active Substance: CELECOXIB
  14. NEXIUM 24HR [Suspect]
     Active Substance: ESOMEPRAZOLE MAGNESIUM
     Route: 048
     Dates: start: 200401, end: 200607
  15. AMOXICILLIN. [Concomitant]
     Active Substance: AMOXICILLIN
  16. AMPICILLIN [Concomitant]
     Active Substance: AMPICILLIN
  17. TELMISARTAN. [Concomitant]
     Active Substance: TELMISARTAN
  18. NEXIUM [Suspect]
     Active Substance: ESOMEPRAZOLE MAGNESIUM
     Indication: GASTROOESOPHAGEAL REFLUX DISEASE
     Route: 048
     Dates: start: 20040101, end: 20060831
  19. DEXILANT [Suspect]
     Active Substance: DEXLANSOPRAZOLE
     Route: 065
     Dates: start: 200401, end: 200607

REACTIONS (6)
  - Renal injury [Unknown]
  - End stage renal disease [Unknown]
  - Acute kidney injury [Not Recovered/Not Resolved]
  - Tubulointerstitial nephritis [Unknown]
  - Dyspepsia [Unknown]
  - Chronic kidney disease [Not Recovered/Not Resolved]

NARRATIVE: CASE EVENT DATE: 200402
